FAERS Safety Report 22085140 (Version 1)
Quarter: 2023Q1

REPORT INFORMATION
  Report Type: Spontaneous
  Country: AU (occurrence: AU)
  Receive Date: 20230310
  Receipt Date: 20230310
  Transmission Date: 20230418
  Serious: Yes (Hospitalization)
  Sender: FDA-Public Use
  Company Number: AU-MYLANLABS-2023M1025642

PATIENT
  Age: 72 Year
  Sex: Female

DRUGS (12)
  1. WARFARIN [Suspect]
     Active Substance: WARFARIN
     Indication: Atrial fibrillation
     Dosage: UNK
     Route: 065
  2. OXYCODONE [Suspect]
     Active Substance: OXYCODONE
     Indication: Analgesic therapy
     Dosage: 20 MILLIGRAM, BID (CONTROLLED RELEASE)
     Route: 065
     Dates: start: 2021, end: 2021
  3. OXYCODONE [Suspect]
     Active Substance: OXYCODONE
     Indication: Analgesic therapy
     Dosage: 5 MILLIGRAM, Q4H (IMMEDIATE RELEASE PATCH)
     Route: 065
     Dates: start: 2021, end: 2021
  4. FENTANYL [Suspect]
     Active Substance: FENTANYL
     Indication: Analgesic therapy
     Dosage: 12 MICROGRAM, QH, CONTINUED AT THE SAME DOSE
     Route: 065
     Dates: start: 2021
  5. FENTANYL [Suspect]
     Active Substance: FENTANYL
     Dosage: 25 MICROGRAM, QH
     Route: 065
     Dates: start: 2021
  6. FENTANYL [Suspect]
     Active Substance: FENTANYL
     Indication: Analgesic therapy
     Dosage: 100 MICROGRAM, Q2H, CONTINUED AT THE SAME DOS
     Route: 060
     Dates: start: 2021
  7. FENTANYL [Suspect]
     Active Substance: FENTANYL
     Dosage: 200 MICROGRAM
     Route: 060
     Dates: start: 2021
  8. TAPENTADOL [Suspect]
     Active Substance: TAPENTADOL
     Indication: Analgesic therapy
     Dosage: UNK UNK, BID (TAPENTADOL SUSTAINED RELEASE UP TO 100 MG TWICE DAILY)
     Route: 065
     Dates: start: 2021, end: 2021
  9. APIXABAN [Concomitant]
     Active Substance: APIXABAN
     Indication: Atrial fibrillation
     Dosage: UNK
     Route: 065
     Dates: start: 2021
  10. SODIUM THIOSULFATE [Concomitant]
     Active Substance: SODIUM THIOSULFATE
     Indication: Calciphylaxis
     Dosage: UNK
     Route: 042
     Dates: start: 2021
  11. PREGABALIN [Concomitant]
     Active Substance: PREGABALIN
     Indication: Analgesic therapy
     Dosage: 75 MILLIGRAM, 3XW, THRICE WEEKLY POST HAEMODIALYSIS (CONTINUED AT THE SAME DOSE)
     Route: 065
     Dates: start: 2021
  12. PREGABALIN [Concomitant]
     Active Substance: PREGABALIN
     Dosage: UNK, DOSE INCREASED
     Route: 065

REACTIONS (11)
  - Calciphylaxis [Recovering/Resolving]
  - Limb injury [Recovering/Resolving]
  - Skin ulcer [Recovering/Resolving]
  - Soft tissue necrosis [Recovering/Resolving]
  - Eschar [Recovering/Resolving]
  - Neuralgia [Recovering/Resolving]
  - Pain [Recovering/Resolving]
  - Breakthrough pain [Recovering/Resolving]
  - Burning sensation [Recovering/Resolving]
  - Neurotoxicity [Recovered/Resolved]
  - Mental status changes [Recovered/Resolved]

NARRATIVE: CASE EVENT DATE: 20210101
